FAERS Safety Report 16601722 (Version 2)
Quarter: 2020Q1

REPORT INFORMATION
  Report Type: Report from Study
  Country: UG (occurrence: UG)
  Receive Date: 20190719
  Receipt Date: 20200313
  Transmission Date: 20200409
  Serious: Yes (Congenital Anomaly, Other)
  Sender: FDA-Public Use
  Company Number: UG-VIIV HEALTHCARE LIMITED-UG2018GSK173922

PATIENT
  Age: 8 Week
  Sex: Male
  Weight: 3.3 kg

DRUGS (7)
  1. MEBENDAZOLE. [Concomitant]
     Active Substance: MEBENDAZOLE
     Dosage: 250 MG, QD
     Dates: start: 20190812, end: 20190812
  2. DOLUTEGRAVIR [Suspect]
     Active Substance: DOLUTEGRAVIR
     Indication: HIV INFECTION
     Dosage: 50 MG, QD
     Route: 064
     Dates: start: 20180625, end: 20180830
  3. VITAMIN A [Concomitant]
     Active Substance: VITAMIN A
     Dosage: 100000 IU, QD
     Dates: start: 20190812, end: 20190812
  4. VITAMIN C TABLET [Concomitant]
     Dosage: 1.5 DF, QD
     Dates: start: 201908, end: 20190810
  5. DELASED COUGH SYRUP (DIPHENHYDRAMINE AND MENTHOL) [Concomitant]
     Dosage: 7.5 ML, QD
     Dates: start: 20190812, end: 20190817
  6. NEVIRAPINE. [Concomitant]
     Active Substance: NEVIRAPINE
     Dosage: 1.5 ML, QD
     Route: 048
     Dates: start: 20180830, end: 20181130
  7. DOLUTEGRAVIR [Suspect]
     Active Substance: DOLUTEGRAVIR
     Dosage: 50 MG, QD
     Route: 063
     Dates: start: 20180830

REACTIONS (1)
  - Congenital umbilical hernia [Not Recovered/Not Resolved]

NARRATIVE: CASE EVENT DATE: 20180830
